FAERS Safety Report 14770273 (Version 1)
Quarter: 2018Q2

REPORT INFORMATION
  Report Type: Spontaneous
  Country: None (occurrence: US)
  Receive Date: 20180417
  Receipt Date: 20180417
  Transmission Date: 20180711
  Serious: Yes (Disabling, Other)
  Sender: FDA-Public Use
  Company Number: US-FRESENIUS KABI-FK201804625

PATIENT
  Sex: Female

DRUGS (4)
  1. DILAUDID [Suspect]
     Active Substance: HYDROMORPHONE HYDROCHLORIDE
     Indication: PAIN
     Route: 065
     Dates: start: 201709, end: 201709
  2. OXYCODONE [Concomitant]
     Active Substance: OXYCODONE
     Indication: PAIN
     Route: 065
     Dates: start: 201709
  3. METHADONE [Concomitant]
     Active Substance: METHADONE HYDROCHLORIDE
     Indication: PAIN
     Route: 065
  4. TYLENOL [Concomitant]
     Active Substance: ACETAMINOPHEN
     Indication: PAIN
     Route: 065
     Dates: start: 201709

REACTIONS (14)
  - Tremor [Unknown]
  - Dysuria [Unknown]
  - Irritability [Unknown]
  - Accidental overdose [Recovered/Resolved]
  - Hot flush [Unknown]
  - Vomiting [Unknown]
  - Asthenia [Unknown]
  - Hyperhidrosis [Unknown]
  - Condition aggravated [Unknown]
  - Amnesia [Unknown]
  - Incorrect dose administered [Recovered/Resolved]
  - Sneezing [Unknown]
  - Constipation [Unknown]
  - Fatigue [Unknown]

NARRATIVE: CASE EVENT DATE: 201709
